FAERS Safety Report 5792996-0 (Version None)
Quarter: 2008Q2

REPORT INFORMATION
  Report Type: 
  Country: None (occurrence: None)
  Receive Date: 20080627
  Receipt Date: 20080617
  Transmission Date: 20081010
  Serious: Yes (Other)
  Sender: FDA-Public Use
  Company Number: PHEH2008US03315

PATIENT
  Sex: Male
  Weight: 108.57 kg

DRUGS (8)
  1. ZOMETA [Suspect]
     Indication: METASTASES TO BONE
     Dosage: 4 MG, ONCE/SINGLE
     Route: 042
     Dates: start: 20080320, end: 20080320
  2. KETOCONAZOLE [Suspect]
     Dosage: 200 MG, QD
  3. KETOCONAZOLE [Suspect]
     Dosage: 400 MG, UNK
  4. CLONAZEPAM [Concomitant]
     Dosage: 1 MG, QD
     Route: 048
  5. COMPAZINE [Concomitant]
     Dosage: UNK
     Route: 048
  6. LOTREL [Concomitant]
     Dosage: 10/20MG, QD
     Route: 048
  7. PAROXETINE HCL [Concomitant]
     Dosage: 10 MG, QD
     Route: 048
  8. VITAMIN CAP [Concomitant]
     Dosage: TABLET, QD
     Route: 048

REACTIONS (43)
  - ALANINE AMINOTRANSFERASE DECREASED [None]
  - ARTHRALGIA [None]
  - ASPARTATE AMINOTRANSFERASE INCREASED [None]
  - ASTHENIA [None]
  - BACK PAIN [None]
  - BLOOD ALKALINE PHOSPHATASE INCREASED [None]
  - BLOOD CREATININE INCREASED [None]
  - BLOOD GLUCOSE INCREASED [None]
  - BLOOD PRESSURE DIASTOLIC DECREASED [None]
  - BLOOD PRESSURE SYSTOLIC INCREASED [None]
  - BODY MASS INDEX INCREASED [None]
  - BODY TEMPERATURE DECREASED [None]
  - CARBON DIOXIDE DECREASED [None]
  - CONFUSIONAL STATE [None]
  - DECREASED APPETITE [None]
  - DYSARTHRIA [None]
  - DYSURIA [None]
  - FATIGUE [None]
  - GAIT DISTURBANCE [None]
  - HAEMATOCRIT DECREASED [None]
  - HAEMOGLOBIN DECREASED [None]
  - HEADACHE [None]
  - HEART RATE INCREASED [None]
  - HYPERKALAEMIA [None]
  - HYPOAESTHESIA [None]
  - HYPOCALCAEMIA [None]
  - HYPOCHLORAEMIA [None]
  - LOCAL SWELLING [None]
  - LYMPHOCYTE COUNT DECREASED [None]
  - LYMPHOCYTE PERCENTAGE DECREASED [None]
  - NEUTROPHIL COUNT DECREASED [None]
  - PAIN IN JAW [None]
  - PERSONALITY DISORDER [None]
  - PLATELET COUNT DECREASED [None]
  - POLLAKIURIA [None]
  - PROSTATIC SPECIFIC ANTIGEN INCREASED [None]
  - PROTEINURIA [None]
  - RED BLOOD CELL COUNT DECREASED [None]
  - RED CELL DISTRIBUTION WIDTH INCREASED [None]
  - VISION BLURRED [None]
  - VISUAL BRIGHTNESS [None]
  - WEIGHT DECREASED [None]
  - WHITE BLOOD CELL COUNT DECREASED [None]
